FAERS Safety Report 17671059 (Version 43)
Quarter: 2025Q1

REPORT INFORMATION
  Report Type: Report from Study
  Country: CA (occurrence: CA)
  Receive Date: 20200415
  Receipt Date: 20250304
  Transmission Date: 20250409
  Serious: Yes (Hospitalization, Other)
  Sender: PFIZER
  Company Number: CA-PFIZER INC-2020133540

PATIENT
  Age: 78 Year
  Sex: Female
  Weight: 93 kg

DRUGS (112)
  1. PREVNAR 13 [Suspect]
     Active Substance: STREPTOCOCCUS PNEUMONIAE TYPE 1 CAPSULAR POLYSACCHARIDE DIPHTHERIA CRM197 PROTEIN CONJUGATE ANTIGEN\
     Indication: Immunisation
     Route: 030
  2. PANTOPRAZOLE SODIUM [Suspect]
     Active Substance: PANTOPRAZOLE SODIUM
     Route: 048
  3. PANTOPRAZOLE SODIUM [Suspect]
     Active Substance: PANTOPRAZOLE SODIUM
     Route: 065
  4. PANTOPRAZOLE SODIUM [Suspect]
     Active Substance: PANTOPRAZOLE SODIUM
     Route: 065
  5. PANTOPRAZOLE SODIUM [Suspect]
     Active Substance: PANTOPRAZOLE SODIUM
     Route: 048
  6. PANTOPRAZOLE SODIUM [Suspect]
     Active Substance: PANTOPRAZOLE SODIUM
     Route: 065
  7. PANTOPRAZOLE SODIUM [Suspect]
     Active Substance: PANTOPRAZOLE SODIUM
     Route: 048
  8. PANTOPRAZOLE SODIUM [Suspect]
     Active Substance: PANTOPRAZOLE SODIUM
     Route: 048
  9. PANTOPRAZOLE SODIUM [Suspect]
     Active Substance: PANTOPRAZOLE SODIUM
     Route: 065
  10. PANTOPRAZOLE SODIUM [Suspect]
     Active Substance: PANTOPRAZOLE SODIUM
     Route: 048
  11. PANTOPRAZOLE SODIUM [Suspect]
     Active Substance: PANTOPRAZOLE SODIUM
     Route: 048
  12. PANTOPRAZOLE SODIUM [Suspect]
     Active Substance: PANTOPRAZOLE SODIUM
     Route: 065
  13. PANTOPRAZOLE SODIUM [Suspect]
     Active Substance: PANTOPRAZOLE SODIUM
     Route: 048
  14. PANTOPRAZOLE SODIUM [Suspect]
     Active Substance: PANTOPRAZOLE SODIUM
     Route: 048
  15. PANTOPRAZOLE SODIUM [Suspect]
     Active Substance: PANTOPRAZOLE SODIUM
     Route: 048
  16. PANTOPRAZOLE SODIUM [Suspect]
     Active Substance: PANTOPRAZOLE SODIUM
     Route: 048
  17. PANTOPRAZOLE SODIUM [Suspect]
     Active Substance: PANTOPRAZOLE SODIUM
     Route: 048
  18. PANTOPRAZOLE SODIUM [Suspect]
     Active Substance: PANTOPRAZOLE SODIUM
     Dosage: 10 MILLIGRAM, QD (1 IN 1 D)
     Route: 048
  19. PANTOPRAZOLE SODIUM [Suspect]
     Active Substance: PANTOPRAZOLE SODIUM
     Dosage: 100 MILLIGRAM, QD (1 IN 1 D)
     Route: 065
  20. PANTOPRAZOLE SODIUM [Suspect]
     Active Substance: PANTOPRAZOLE SODIUM
     Dosage: 08 MILLIGRAM, QD (1 IN 1 D)
     Route: 065
  21. PANTOPRAZOLE SODIUM [Suspect]
     Active Substance: PANTOPRAZOLE SODIUM
     Dosage: 1 DOSAGE FORM, QD (1 IN 1D)
     Route: 065
  22. PANTOPRAZOLE SODIUM [Suspect]
     Active Substance: PANTOPRAZOLE SODIUM
     Dosage: 2 DOSAGE FORM, QD (1 IN 1 D)
     Route: 065
  23. PREVACID [Suspect]
     Active Substance: LANSOPRAZOLE
     Indication: Gastrooesophageal reflux disease
     Route: 048
  24. PREVACID [Suspect]
     Active Substance: LANSOPRAZOLE
     Route: 065
  25. AZITHROMYCIN [Suspect]
     Active Substance: AZITHROMYCIN
     Route: 065
  26. MORPHINE SULFATE [Suspect]
     Active Substance: MORPHINE SULFATE
     Indication: Dyspnoea
     Route: 048
  27. MORPHINE SULFATE [Suspect]
     Active Substance: MORPHINE SULFATE
     Route: 048
  28. MORPHINE SULFATE [Suspect]
     Active Substance: MORPHINE SULFATE
     Route: 048
  29. MORPHINE SULFATE [Suspect]
     Active Substance: MORPHINE SULFATE
     Route: 048
  30. MORPHINE SULFATE [Suspect]
     Active Substance: MORPHINE SULFATE
     Route: 048
  31. MORPHINE SULFATE [Suspect]
     Active Substance: MORPHINE SULFATE
     Route: 048
  32. MORPHINE SULFATE [Suspect]
     Active Substance: MORPHINE SULFATE
     Route: 048
  33. MORPHINE SULFATE [Suspect]
     Active Substance: MORPHINE SULFATE
     Route: 048
  34. MORPHINE SULFATE [Suspect]
     Active Substance: MORPHINE SULFATE
     Route: 048
  35. MORPHINE SULFATE [Suspect]
     Active Substance: MORPHINE SULFATE
     Route: 065
  36. MORPHINE SULFATE [Suspect]
     Active Substance: MORPHINE SULFATE
     Dosage: 10 MG, 1X/DAY, (10 MILLIGRAM, QD)
     Route: 048
  37. NITROGLYCERIN [Suspect]
     Active Substance: NITROGLYCERIN
     Route: 065
  38. PREGABALIN [Suspect]
     Active Substance: PREGABALIN
     Route: 048
  39. PREGABALIN [Suspect]
     Active Substance: PREGABALIN
     Route: 048
  40. PREGABALIN [Suspect]
     Active Substance: PREGABALIN
     Route: 048
  41. INFLUENZA VIRUS VACCINE [Suspect]
     Active Substance: INFLUENZA VIRUS VACCINE
     Indication: Immunisation
     Route: 065
  42. ACETAMINOPHEN [Suspect]
     Active Substance: ACETAMINOPHEN
     Route: 065
  43. ACETAMINOPHEN [Suspect]
     Active Substance: ACETAMINOPHEN
     Route: 065
  44. ACETAMINOPHEN [Suspect]
     Active Substance: ACETAMINOPHEN
     Route: 065
  45. ACETAMINOPHEN [Suspect]
     Active Substance: ACETAMINOPHEN
     Route: 065
  46. ACETAMINOPHEN [Suspect]
     Active Substance: ACETAMINOPHEN
     Route: 065
  47. ACETAMINOPHEN [Suspect]
     Active Substance: ACETAMINOPHEN
     Route: 065
  48. ACETAMINOPHEN [Suspect]
     Active Substance: ACETAMINOPHEN
     Route: 065
  49. ACETAMINOPHEN [Suspect]
     Active Substance: ACETAMINOPHEN
     Route: 065
  50. ACETAMINOPHEN [Suspect]
     Active Substance: ACETAMINOPHEN
     Route: 065
  51. ATROVENT [Suspect]
     Active Substance: IPRATROPIUM BROMIDE
     Route: 065
  52. CANDESARTAN [Suspect]
     Active Substance: CANDESARTAN
     Dosage: 8 MILLIGRAM, QD
     Route: 048
  53. CANDESARTAN [Suspect]
     Active Substance: CANDESARTAN
     Route: 048
  54. CANDESARTAN [Suspect]
     Active Substance: CANDESARTAN
     Dosage: 80 MG, 1X/DAY, (80 MILLIGRAM, QD)
     Route: 048
  55. CANDESARTAN [Suspect]
     Active Substance: CANDESARTAN
     Dosage: 8 MG, 1X/DAY, QD
     Route: 048
  56. CANDESARTAN [Suspect]
     Active Substance: CANDESARTAN
     Dosage: 8 MG, 1X/DAY, QD
     Route: 048
  57. DOMPERIDONE [Suspect]
     Active Substance: DOMPERIDONE
     Route: 048
  58. JUBLIA [Suspect]
     Active Substance: EFINACONAZOLE
     Route: 061
  59. JUBLIA [Suspect]
     Active Substance: EFINACONAZOLE
     Route: 061
  60. LEVOTHYROXINE SODIUM [Suspect]
     Active Substance: LEVOTHYROXINE SODIUM
     Route: 065
  61. MEPOLIZUMAB [Suspect]
     Active Substance: MEPOLIZUMAB
     Indication: Asthma
     Dosage: 100 MILLIGRAM, MONTHLY (FIRST DOSE100.0MG UNKNOWN)
     Route: 042
  62. MEPOLIZUMAB [Suspect]
     Active Substance: MEPOLIZUMAB
     Dosage: 100 MILLIGRAM, MONTHLY (SECOND DOSE100.0MG UNKNOWN)
     Route: 042
  63. NASONEX [Suspect]
     Active Substance: MOMETASONE FUROATE
     Indication: Asthma
     Route: 045
  64. NASONEX [Suspect]
     Active Substance: MOMETASONE FUROATE
     Route: 065
  65. NASONEX [Suspect]
     Active Substance: MOMETASONE FUROATE
     Route: 065
  66. PRAMIPEXOLE [Suspect]
     Active Substance: PRAMIPEXOLE
     Route: 048
  67. PRAMIPEXOLE [Suspect]
     Active Substance: PRAMIPEXOLE
     Route: 048
  68. PRAMIPEXOLE [Suspect]
     Active Substance: PRAMIPEXOLE
     Route: 048
  69. PRAMIPEXOLE [Suspect]
     Active Substance: PRAMIPEXOLE
     Route: 065
  70. QUETIAPINE [Suspect]
     Active Substance: QUETIAPINE
     Route: 048
  71. QUETIAPINE [Suspect]
     Active Substance: QUETIAPINE
     Route: 048
  72. RANITIDINE [Suspect]
     Active Substance: RANITIDINE
     Indication: Influenza
     Route: 065
  73. RANITIDINE [Suspect]
     Active Substance: RANITIDINE
     Indication: Gastrooesophageal reflux disease
     Route: 048
  74. RISEDRONATE SODIUM [Suspect]
     Active Substance: RISEDRONATE SODIUM
     Route: 065
  75. ROSUVASTATIN CALCIUM [Suspect]
     Active Substance: ROSUVASTATIN CALCIUM
     Route: 048
  76. ROSUVASTATIN CALCIUM [Suspect]
     Active Substance: ROSUVASTATIN CALCIUM
     Route: 048
  77. ROSUVASTATIN CALCIUM [Suspect]
     Active Substance: ROSUVASTATIN CALCIUM
     Route: 048
  78. SENNOSIDES A AND B [Suspect]
     Active Substance: SENNOSIDES A AND B
     Route: 048
  79. SENNOSIDES A AND B [Suspect]
     Active Substance: SENNOSIDES A AND B
     Route: 048
  80. SENNOSIDES A AND B [Suspect]
     Active Substance: SENNOSIDES A AND B
     Route: 065
  81. SPIRIVA [Suspect]
     Active Substance: TIOTROPIUM BROMIDE MONOHYDRATE
     Dosage: 1 DOSAGE FORM, QD
     Route: 065
  82. SYMBICORT [Suspect]
     Active Substance: BUDESONIDE\FORMOTEROL FUMARATE DIHYDRATE
     Dosage: 2 DOSAGE FORM, TWO TIMES A DAY
     Route: 055
  83. SYMBICORT [Suspect]
     Active Substance: BUDESONIDE\FORMOTEROL FUMARATE DIHYDRATE
     Dosage: 2 DOSAGE FORM, TWO TIMES A DAY
     Route: 065
  84. SYMBICORT [Suspect]
     Active Substance: BUDESONIDE\FORMOTEROL FUMARATE DIHYDRATE
     Dosage: 1 DOSAGE FORM, 1 EVERY 1 DAYS
     Route: 065
  85. SYMBICORT [Suspect]
     Active Substance: BUDESONIDE\FORMOTEROL FUMARATE DIHYDRATE
     Dosage: 1 DF, 2X/DAY
     Route: 065
  86. SYMBICORT [Suspect]
     Active Substance: BUDESONIDE\FORMOTEROL FUMARATE DIHYDRATE
     Dosage: 4.0 DOSAGE FORMS QD
     Route: 065
  87. TRAZODONE [Suspect]
     Active Substance: TRAZODONE HYDROCHLORIDE
     Route: 048
  88. TRAZODONE [Suspect]
     Active Substance: TRAZODONE HYDROCHLORIDE
     Route: 048
  89. TRAZODONE [Suspect]
     Active Substance: TRAZODONE HYDROCHLORIDE
     Route: 048
  90. TRAZODONE [Suspect]
     Active Substance: TRAZODONE HYDROCHLORIDE
     Route: 065
  91. TRAZODONE [Suspect]
     Active Substance: TRAZODONE HYDROCHLORIDE
     Dosage: 1 DF, 1X/DAY (QD)
  92. VENTOLIN [Suspect]
     Active Substance: ALBUTEROL SULFATE
     Indication: Asthma
     Route: 065
  93. VENTOLIN [Suspect]
     Active Substance: ALBUTEROL SULFATE
     Route: 065
  94. VITAMIN D [Suspect]
     Active Substance: VITAMIN D NOS
     Route: 048
  95. XOLAIR [Suspect]
     Active Substance: OMALIZUMAB
     Route: 065
  96. ZOPICLONE [Suspect]
     Active Substance: ZOPICLONE
     Route: 048
  97. SENNA LEAF [Suspect]
     Active Substance: SENNA LEAF
     Route: 048
  98. NITROGLYCERIN [Suspect]
     Active Substance: NITROGLYCERIN
     Route: 065
  99. BISACODYL [Suspect]
     Active Substance: BISACODYL
     Route: 065
  100. BISACODYL [Suspect]
     Active Substance: BISACODYL
  101. MEPYRAMINE MALEATE [Suspect]
     Active Substance: PYRILAMINE MALEATE
     Route: 065
  102. PYRILAMINE MALEATE [Suspect]
     Active Substance: PYRILAMINE MALEATE
     Route: 065
  103. SILDENAFIL CITRATE [Suspect]
     Active Substance: SILDENAFIL CITRATE
     Route: 061
  104. FORMOTEROL FUMARATE [Suspect]
     Active Substance: FORMOTEROL FUMARATE
     Indication: Asthma
     Dosage: 2 DF, ALTERNATE DAY, QOD
     Route: 065
  105. FORMOTEROL FUMARATE [Suspect]
     Active Substance: FORMOTEROL FUMARATE
     Route: 065
  106. DEXILANT [Suspect]
     Active Substance: DEXLANSOPRAZOLE
     Indication: Gastrooesophageal reflux disease
     Route: 065
  107. MONTELUKAST [Suspect]
     Active Substance: MONTELUKAST
     Indication: Asthma
     Dosage: 10 MILLIGRAM, QD
     Route: 048
  108. MONTELUKAST [Suspect]
     Active Substance: MONTELUKAST
     Dosage: 10 MILLIGRAM, QD
     Route: 048
  109. MONTELUKAST [Suspect]
     Active Substance: MONTELUKAST
     Route: 048
  110. MONTELUKAST [Suspect]
     Active Substance: MONTELUKAST
     Route: 048
  111. MONTELUKAST [Suspect]
     Active Substance: MONTELUKAST
     Dosage: 10 MILLIGRAM, QD
     Route: 048
  112. MONTELUKAST [Suspect]
     Active Substance: MONTELUKAST
     Dosage: 1 DOSAGE FORM, QD
     Route: 048

REACTIONS (23)
  - Drug ineffective [Not Recovered/Not Resolved]
  - Pneumonia [Not Recovered/Not Resolved]
  - Pneumococcal infection [Not Recovered/Not Resolved]
  - Pleural effusion [Not Recovered/Not Resolved]
  - Abdominal pain upper [Not Recovered/Not Resolved]
  - Anaemia [Not Recovered/Not Resolved]
  - Blood creatinine increased [Not Recovered/Not Resolved]
  - Constipation [Not Recovered/Not Resolved]
  - Drug hypersensitivity [Not Recovered/Not Resolved]
  - Headache [Not Recovered/Not Resolved]
  - Oedema peripheral [Not Recovered/Not Resolved]
  - Transaminases increased [Not Recovered/Not Resolved]
  - Gastrooesophageal reflux disease [Not Recovered/Not Resolved]
  - Musculoskeletal stiffness [Not Recovered/Not Resolved]
  - Aspiration [Not Recovered/Not Resolved]
  - Pulmonary fibrosis [Not Recovered/Not Resolved]
  - Upper respiratory tract infection [Not Recovered/Not Resolved]
  - Asthma [Not Recovered/Not Resolved]
  - Blood calcium increased [Not Recovered/Not Resolved]
  - Bronchopulmonary aspergillosis allergic [Not Recovered/Not Resolved]
  - General physical health deterioration [Not Recovered/Not Resolved]
  - Pulmonary mass [Not Recovered/Not Resolved]
  - Product dose omission issue [Not Recovered/Not Resolved]
